FAERS Safety Report 5209734-2 (Version None)
Quarter: 2006Q4

REPORT INFORMATION
  Report Type: 
  Country: None (occurrence: None)
  Receive Date: 20061128
  Receipt Date: 20051013
  Transmission Date: 20070319
  Serious: Yes (Other)
  Sender: FDA-Public Use
  Company Number: 2005143257

PATIENT
  Age: 76 Year
  Sex: Female

DRUGS (6)
  1. TIKOSYN [Suspect]
     Indication: ATRIAL FIBRILLATION
     Dosage: 0.5 MG (0.25 MG, 2 IN 1 D)
     Dates: start: 20050214
  2. SYNTHROID [Concomitant]
  3. ESTROGENIC SUBSTANCE [Concomitant]
  4. QUININE SULFATE [Concomitant]
  5. EXTRA STRENGTH TYLENOL [Concomitant]
  6. ARTIFICIAL TEARS (ARTIFICIAL TEARS) [Concomitant]

REACTIONS (3)
  - ALOPECIA [None]
  - DIARRHOEA [None]
  - DRUG ERUPTION [None]
